FAERS Safety Report 8156143-2 (Version None)
Quarter: 2012Q1

REPORT INFORMATION
  Report Type: 
  Country: None (occurrence: None)
  Receive Date: 20120222
  Receipt Date: 20120208
  Transmission Date: 20120608
  Serious: Yes (Life-Threatening, Hospitalization)
  Sender: FDA-Public Use
  Company Number: GB-MYLANLABS-2012S1002818

PATIENT
  Age: 42 Year
  Sex: Female
  Weight: 94.1 kg

DRUGS (12)
  1. DIHYDROCODEINE BITARTRATE INJ [Concomitant]
     Indication: PRODUCT USED FOR UNKNOWN INDICATION
  2. ETORICOXIB [Concomitant]
     Indication: PRODUCT USED FOR UNKNOWN INDICATION
  3. ACETAMINOPHEN AND CODEINE PHOSPHATE [Concomitant]
     Indication: PRODUCT USED FOR UNKNOWN INDICATION
  4. RAMIPRIL [Concomitant]
     Indication: PRODUCT USED FOR UNKNOWN INDICATION
  5. RANITIDINE [Suspect]
     Indication: PRODUCT USED FOR UNKNOWN INDICATION
  6. METHOTREXATE [Concomitant]
     Indication: PRODUCT USED FOR UNKNOWN INDICATION
  7. MEBEVERINE [Concomitant]
     Indication: PRODUCT USED FOR UNKNOWN INDICATION
  8. VICTOZA [Suspect]
     Indication: TYPE 2 DIABETES MELLITUS
     Dates: start: 20111122, end: 20111226
  9. AMITRIPTYLINE HCL [Concomitant]
     Indication: PRODUCT USED FOR UNKNOWN INDICATION
  10. FOLIC ACID [Concomitant]
     Indication: PRODUCT USED FOR UNKNOWN INDICATION
  11. GLIMEPIRID [Concomitant]
     Indication: PRODUCT USED FOR UNKNOWN INDICATION
  12. METFORMIN HCL [Concomitant]
     Indication: PRODUCT USED FOR UNKNOWN INDICATION

REACTIONS (3)
  - PANCREATITIS ACUTE [None]
  - WEIGHT DECREASED [None]
  - HEPATIC STEATOSIS [None]
